FAERS Safety Report 13390051 (Version 1)
Quarter: 2017Q1

REPORT INFORMATION
  Report Type: Spontaneous
  Country: US (occurrence: US)
  Receive Date: 20170331
  Receipt Date: 20170331
  Transmission Date: 20170429
  Serious: No
  Sender: FDA-Public Use
  Company Number: US-JNJFOC-20170320320

PATIENT
  Age: 6 Year
  Sex: Male
  Weight: 21.32 kg

DRUGS (2)
  1. ZYRTEC [Suspect]
     Active Substance: CETIRIZINE HYDROCHLORIDE
     Route: 065
  2. ZYRTEC [Suspect]
     Active Substance: CETIRIZINE HYDROCHLORIDE
     Indication: NASAL CONGESTION
     Dosage: 1 TABLET DAILY
     Route: 065
     Dates: start: 20170309

REACTIONS (3)
  - Urticaria [Recovered/Resolved]
  - Product use issue [Unknown]
  - Pruritus [Recovered/Resolved]

NARRATIVE: CASE EVENT DATE: 20170309
